FAERS Safety Report 16277740 (Version 1)
Quarter: 2019Q2

REPORT INFORMATION
  Report Type: Spontaneous
  Country: US (occurrence: US)
  Receive Date: 20190506
  Receipt Date: 20190506
  Transmission Date: 20190711
  Serious: Yes (Other)
  Sender: FDA-Public Use
  Company Number: US-AMGEN-USASP2019069524

PATIENT

DRUGS (3)
  1. PEGFILGRASTIM [Suspect]
     Active Substance: PEGFILGRASTIM
     Indication: NEUTROPENIA
     Dosage: 6 MILLIGRAM, Q3WK (ON DAY 2 OF EACH CHEMO CYCLE)
     Route: 058
  2. TAXOTERE [Concomitant]
     Active Substance: DOCETAXEL
     Indication: BREAST CANCER
     Dosage: UNK UNK, Q3WK (ON DAY 1 OF EACH CYCLE)
  3. CYCLOPHOSPHAMIDE. [Concomitant]
     Active Substance: CYCLOPHOSPHAMIDE
     Indication: BREAST CANCER
     Dosage: UNK UNK, Q3WK ON DAY 1 OF EACH CYCLE)

REACTIONS (6)
  - Leukopenia [Unknown]
  - Anaemia [Unknown]
  - Lymphopenia [Unknown]
  - Febrile neutropenia [Unknown]
  - Bone pain [Unknown]
  - Neutropenia [Unknown]
